FAERS Safety Report 9683891 (Version 1)
Quarter: 2013Q4

REPORT INFORMATION
  Report Type: Spontaneous
  Country: US (occurrence: US)
  Receive Date: 20131112
  Receipt Date: 20131112
  Transmission Date: 20140711
  Serious: No
  Sender: FDA-Public Use
  Company Number: US-MALLINCKRODT-T201304211

PATIENT
  Age: 70 Year
  Sex: Male
  Weight: 49.43 kg

DRUGS (2)
  1. FENTANYL TRANSDERMAL SYSTEM [Suspect]
     Indication: CANCER PAIN
     Dosage: 100 UG/HR, 1 PATCH EVERY 72 HRS
     Route: 062
     Dates: start: 20130825
  2. OXYCODONE [Concomitant]
     Indication: CANCER PAIN
     Dosage: 30 MG, Q 2 HRS

REACTIONS (5)
  - Aphagia [Recovered/Resolved]
  - Posture abnormal [Recovered/Resolved]
  - Incorrect drug administration duration [Not Recovered/Not Resolved]
  - Insomnia [Not Recovered/Not Resolved]
  - Drug ineffective [Not Recovered/Not Resolved]
